FAERS Safety Report 6664606-1 (Version None)
Quarter: 2010Q1

REPORT INFORMATION
  Report Type: 
  Country: None (occurrence: None)
  Receive Date: 20100330
  Receipt Date: 20091110
  Transmission Date: 20100710
  Serious: Yes (Hospitalization)
  Sender: FDA-Public Use
  Company Number: 6055843

PATIENT
  Age: 85 Year
  Sex: Male

DRUGS (16)
  1. LEVOTHYROXINE SODIUM [Suspect]
     Indication: HYPOTHYROIDISM
     Dosage: 1 DOSAGE FORM (1 DOSAGE FORMS, 1 IN 1 DAY), ORAL
     Route: 048
     Dates: start: 20080401
  2. HYDROCORTISONE [Suspect]
     Indication: HYPOTHYROIDISM
     Dosage: 10 MG TABLET, ORAL 40 MG, ORAL
     Route: 048
     Dates: start: 20080401, end: 20080415
  3. HYDROCORTISONE [Suspect]
     Indication: HYPOTHYROIDISM
     Dosage: 10 MG TABLET, ORAL 40 MG, ORAL
     Route: 048
     Dates: start: 20090415
  4. PREVISCAN (FLUINDIONE) [Suspect]
  5. BISOPROLOL FUMARATE [Concomitant]
  6. PLAVIX [Concomitant]
  7. TRANDOLAPRIL [Concomitant]
  8. FUROSEMIDE [Concomitant]
  9. XATRAL (ALFUZOSIN) [Concomitant]
  10. NEXIUM [Concomitant]
  11. TRANXENE [Concomitant]
  12. CALCIUM CARBONATE [Concomitant]
  13. CALCIFEDIOL [Suspect]
  14. POLYETHYLENE GLYCOL [Concomitant]
  15. EPOETIN BETA [Concomitant]
  16. CORDARONE [Concomitant]

REACTIONS (7)
  - AGITATION [None]
  - DIET REFUSAL [None]
  - IRRITABILITY [None]
  - MAJOR DEPRESSION [None]
  - MUTISM [None]
  - NEGATIVISM [None]
  - REFUSAL OF TREATMENT BY PATIENT [None]
